FAERS Safety Report 9475438 (Version 1)
Quarter: 2013Q3

REPORT INFORMATION
  Report Type: Spontaneous
  Country: US (occurrence: US)
  Receive Date: 20130826
  Receipt Date: 20130826
  Transmission Date: 20140515
  Serious: No
  Sender: FDA-Public Use
  Company Number: US-009507513-1308USA010489

PATIENT
  Age: 54 Year
  Sex: Male

DRUGS (2)
  1. DULERA [Suspect]
     Dosage: 2 PUFFS, 2 TIMES A DAY
     Route: 048
     Dates: start: 2013
  2. PROVENTIL [Concomitant]
     Route: 055

REACTIONS (2)
  - Haematochezia [Unknown]
  - Drug dose omission [Unknown]
